FAERS Safety Report 10545527 (Version 1)
Quarter: 2014Q4

REPORT INFORMATION
  Report Type: Spontaneous
  Country: US (occurrence: US)
  Receive Date: 20141027
  Receipt Date: 20141027
  Transmission Date: 20150529
  Serious: No
  Sender: FDA-Public Use
  Company Number: US-ASTELLAS-2014US006036

PATIENT

DRUGS (1)
  1. LEXISCAN [Suspect]
     Active Substance: REGADENOSON
     Indication: DIAGNOSTIC PROCEDURE
     Dosage: UNK, UNKNOWN FREQ.
     Route: 065

REACTIONS (1)
  - Product use issue [Unknown]
